FAERS Safety Report 12969612 (Version 4)
Quarter: 2017Q2

REPORT INFORMATION
  Report Type: Spontaneous
  Country: US (occurrence: US)
  Receive Date: 20161123
  Receipt Date: 20170421
  Transmission Date: 20170830
  Serious: Yes (Hospitalization, Other)
  Sender: FDA-Public Use
  Company Number: US-SAOL THERAPEUTICS-2016SAO01093

PATIENT
  Sex: Male

DRUGS (2)
  1. BACLOFEN. [Suspect]
     Active Substance: BACLOFEN
     Indication: MUSCLE SPASTICITY
     Dosage: 215.79 ?G, \DAY
  2. MORPHINE [Suspect]
     Active Substance: MORPHINE
     Dosage: 7.193 MG, \DAY

REACTIONS (8)
  - Hypertension [Recovered/Resolved]
  - Muscular weakness [Unknown]
  - Gait disturbance [Recovered/Resolved]
  - Kidney infection [Unknown]
  - Drug withdrawal syndrome [Recovered/Resolved]
  - Back pain [Recovered/Resolved]
  - Dysstasia [Recovered/Resolved]
  - Cold sweat [Recovered/Resolved]

NARRATIVE: CASE EVENT DATE: 2013
